FAERS Safety Report 14699333 (Version 1)
Quarter: 2018Q1

REPORT INFORMATION
  Report Type: Spontaneous
  Country: GB (occurrence: GB)
  Receive Date: 20180330
  Receipt Date: 20180330
  Transmission Date: 20180509
  Serious: Yes (Hospitalization)
  Sender: FDA-Public Use
  Company Number: GB-NOVOPROD-578359

PATIENT
  Age: 15 Year
  Sex: Female
  Weight: 50.4 kg

DRUGS (4)
  1. NOVORAPID [Suspect]
     Active Substance: INSULIN ASPART
     Dosage: 39.28 IU, QD
     Route: 058
     Dates: start: 20171217
  2. NOVORAPID [Suspect]
     Active Substance: INSULIN ASPART
     Dosage: 43 IU, QD
     Route: 058
     Dates: end: 20171218
  3. NOVORAPID [Suspect]
     Active Substance: INSULIN ASPART
     Dosage: UNK
     Route: 058
  4. NOVORAPID [Suspect]
     Active Substance: INSULIN ASPART
     Indication: TYPE 1 DIABETES MELLITUS
     Dosage: 39.28 IU, QD
     Route: 058

REACTIONS (7)
  - Product quality issue [Unknown]
  - Diabetic ketoacidosis [Recovered/Resolved]
  - Product container issue [Unknown]
  - Product container issue [Unknown]
  - Product leakage [Unknown]
  - Blood glucose increased [Recovered/Resolved]
  - Product leakage [Unknown]

NARRATIVE: CASE EVENT DATE: 20171217
